FAERS Safety Report 16595856 (Version 1)
Quarter: 2019Q3

REPORT INFORMATION
  Report Type: Spontaneous
  Country: FR (occurrence: FR)
  Receive Date: 20190719
  Receipt Date: 20190719
  Transmission Date: 20191004
  Serious: Yes (Other)
  Sender: FDA-Public Use
  Company Number: FR-TEVA-2019-FR-1078243

PATIENT
  Age: 36 Year
  Sex: Female

DRUGS (1)
  1. HYDROXYZINE (DICHLORHYDRATE DE) [Suspect]
     Active Substance: HYDROXYZINE HYDROCHLORIDE
     Route: 065

REACTIONS (2)
  - Victim of chemical submission [Unknown]
  - Amnesia [Unknown]

NARRATIVE: CASE EVENT DATE: 20181114
